FAERS Safety Report 5864983-5 (Version None)
Quarter: 2008Q3

REPORT INFORMATION
  Report Type: 
  Country: None (occurrence: None)
  Receive Date: 20080829
  Receipt Date: 20040703
  Transmission Date: 20090109
  Serious: Yes (Other)
  Sender: FDA-Public Use
  Company Number: US-BAYER-200830591NA

PATIENT

DRUGS (1)
  1. AVELOX [Suspect]
     Indication: LUNG INFECTION
     Route: 048

REACTIONS (2)
  - COUGH [None]
  - PERTUSSIS [None]
